FAERS Safety Report 11223629 (Version 2)
Quarter: 2015Q3

REPORT INFORMATION
  Report Type: Spontaneous
  Country: SK (occurrence: SK)
  Receive Date: 20150629
  Receipt Date: 20150708
  Transmission Date: 20151125
  Serious: Yes (Death, Life-Threatening, Hospitalization)
  Sender: FDA-Public Use
  Company Number: SK-AMGEN-SVKSP2015062340

PATIENT
  Age: 44 Year
  Sex: Female
  Weight: 80 kg

DRUGS (7)
  1. PROCORALAN [Suspect]
     Active Substance: IVABRADINE
     Indication: CARDIAC FAILURE CHRONIC
     Dosage: 10 MG DAILY
     Route: 048
     Dates: start: 20130214, end: 20150410
  2. AMLODIPINE W/PERINDOPRIL [Concomitant]
     Dosage: (10 MG/ 5 MG DAILY)
  3. CARVEDILOL. [Concomitant]
     Active Substance: CARVEDILOL
     Dosage: 25 MG, QD
     Dates: end: 201504
  4. RILMENIDINE [Concomitant]
     Active Substance: RILMENIDINE
     Dosage: 1 MG, BID
  5. EPLERENONE. [Concomitant]
     Active Substance: EPLERENONE
     Dosage: 25 MG, QD
     Dates: end: 201504
  6. PERINDOPRIL/INDAPAMIDE [Concomitant]
     Active Substance: INDAPAMIDE\PERINDOPRIL
     Dosage: (10 MG / 2.5 MG DAILY)
  7. EUTHYROX [Concomitant]
     Active Substance: LEVOTHYROXINE SODIUM
     Dosage: 75 MUG, QD
     Dates: end: 201504

REACTIONS (18)
  - Hypokalaemia [Fatal]
  - Troponin increased [Fatal]
  - Intentional overdose [Fatal]
  - Cardiac failure [Fatal]
  - Electrocardiogram T wave inversion [Fatal]
  - Blood sodium increased [Fatal]
  - Electrocardiogram QT prolonged [Fatal]
  - Ventricular fibrillation [Fatal]
  - Generalised tonic-clonic seizure [Fatal]
  - Brain injury [Fatal]
  - Bradycardia [Fatal]
  - Pneumonia aspiration [Fatal]
  - Vomiting [Fatal]
  - Depressed level of consciousness [Fatal]
  - Blood creatine phosphokinase increased [Fatal]
  - Cardiac arrest [Fatal]
  - Electrocardiogram ST segment depression [Fatal]
  - Completed suicide [Fatal]

NARRATIVE: CASE EVENT DATE: 20150410
